FAERS Safety Report 22232781 (Version 1)
Quarter: 2023Q2

REPORT INFORMATION
  Report Type: Other
  Country: US (occurrence: None)
  Receive Date: 20230420
  Receipt Date: 20230420
  Transmission Date: 20230722
  Serious: No
  Sender: FDA-Public Use
  Company Number: US-ROCHE-3147012

PATIENT
  Age: 30 Year
  Sex: Male

DRUGS (2)
  1. BEVACIZUMAB [Suspect]
     Active Substance: BEVACIZUMAB
     Indication: Radiation necrosis
     Route: 065
  2. BELZUTIFAN [Concomitant]
     Active Substance: BELZUTIFAN
     Indication: Haemangioblastoma
     Route: 048

REACTIONS (1)
  - Skin infection [Unknown]
